FAERS Safety Report 6398050-1 (Version None)
Quarter: 2009Q4

REPORT INFORMATION
  Report Type: 
  Country: None (occurrence: None)
  Receive Date: 20091013
  Receipt Date: 20091002
  Transmission Date: 20100525
  Serious: Yes (Other)
  Sender: FDA-Public Use
  Company Number: US-AMGEN-QUU363866

PATIENT
  Sex: Male
  Weight: 31.3 kg

DRUGS (5)
  1. ENBREL [Suspect]
     Indication: DRUG USE FOR UNKNOWN INDICATION
     Route: 058
     Dates: start: 20040101
  2. PREDNISONE [Concomitant]
  3. METHADONE HYDROCHLORIDE [Concomitant]
  4. NEURONTIN [Concomitant]
  5. PREVACID [Concomitant]

REACTIONS (10)
  - BLINDNESS TRANSIENT [None]
  - DEAFNESS [None]
  - DIZZINESS [None]
  - EAR INFECTION [None]
  - HYPERSENSITIVITY [None]
  - INFLUENZA [None]
  - LYMPHADENOPATHY [None]
  - MIGRAINE [None]
  - OROPHARYNGEAL PAIN [None]
  - SINUS CONGESTION [None]
